FAERS Safety Report 10868522 (Version 2)
Quarter: 2015Q2

REPORT INFORMATION
  Report Type: Spontaneous
  Country: US (occurrence: US)
  Receive Date: 20150225
  Receipt Date: 20150529
  Transmission Date: 20150821
  Serious: No
  Sender: FDA-Public Use
  Company Number: US-ELI_LILLY_AND_COMPANY-US201501011170

PATIENT
  Age: 11 Year
  Sex: Female
  Weight: 26 kg

DRUGS (4)
  1. LEVOTHYROXINE [Concomitant]
     Active Substance: LEVOTHYROXINE
     Indication: HYPOTHYROIDISM
     Dosage: 44 UG, UNKNOWN
     Route: 065
  2. HUMATROPE [Suspect]
     Active Substance: SOMATROPIN
     Dosage: 1.3 MG, QD
     Route: 058
     Dates: start: 20150128
  3. MELATONIN [Concomitant]
     Active Substance: MELATONIN
     Dosage: 1.5 MG, UNKNOWN
  4. HUMATROPE [Suspect]
     Active Substance: SOMATROPIN
     Indication: BODY HEIGHT BELOW NORMAL
     Dosage: 1.3 MG, QD
     Route: 058
     Dates: start: 20141217, end: 20150126

REACTIONS (2)
  - Wrong technique in drug usage process [Recovered/Resolved]
  - Overdose [Recovered/Resolved]

NARRATIVE: CASE EVENT DATE: 20141217
